FAERS Safety Report 12912486 (Version 2)
Quarter: 2016Q4

REPORT INFORMATION
  Report Type: Spontaneous
  Country: TR (occurrence: TR)
  Receive Date: 20161104
  Receipt Date: 20161116
  Transmission Date: 20170207
  Serious: Yes (Hospitalization)
  Sender: FDA-Public Use
  Company Number: TR-JNJFOC-20161103559

PATIENT
  Age: 12 Year
  Sex: Female

DRUGS (2)
  1. CLOMIPRAMINE [Interacting]
     Active Substance: CLOMIPRAMINE
     Indication: SUICIDE ATTEMPT
     Route: 048
  2. RISPERIDONE. [Suspect]
     Active Substance: RISPERIDONE
     Indication: ABNORMAL BEHAVIOUR
     Route: 065

REACTIONS (5)
  - Suicide attempt [Unknown]
  - Treatment noncompliance [Unknown]
  - Serotonin syndrome [Recovered/Resolved]
  - Intentional self-injury [Unknown]
  - Drug interaction [Recovered/Resolved]
